FAERS Safety Report 9193166 (Version 1)
Quarter: 2013Q1

REPORT INFORMATION
  Report Type: Report from Study
  Country: JP (occurrence: JP)
  Receive Date: 20130327
  Receipt Date: 20130327
  Transmission Date: 20140127
  Serious: Yes (Death, Other)
  Sender: FDA-Public Use
  Company Number: PHHY2011JP21225

PATIENT
  Age: 68 Year
  Sex: Female

DRUGS (10)
  1. AFINITOR [Suspect]
     Indication: RENAL CELL CARCINOMA
     Dosage: 10 MG
     Route: 048
     Dates: start: 20100605, end: 20100610
  2. SUNITINIB MALATE [Concomitant]
     Indication: RENAL CELL CARCINOMA
     Dosage: 37.3 MG
     Route: 048
     Dates: start: 20100110, end: 20100422
  3. AMLODIN [Concomitant]
     Dosage: 5 MG
     Route: 048
     Dates: start: 20061221, end: 20100703
  4. GABAPEN [Concomitant]
     Indication: RENAL CELL CARCINOMA
     Dosage: 400 MG
     Dates: start: 20100616, end: 20100703
  5. TAGAMET [Concomitant]
     Dosage: 200 MG
     Route: 048
     Dates: start: 20050620, end: 20100702
  6. THYRADIN S [Concomitant]
     Dosage: 75 UG
     Route: 048
     Dates: start: 20050809, end: 20100702
  7. NOVAMIN [Concomitant]
     Indication: RENAL CELL CARCINOMA
     Dosage: 15 MG
     Route: 048
     Dates: start: 20090530, end: 20100702
  8. MAGMITT [Concomitant]
     Dosage: 1.5 G
     Route: 048
     Dates: start: 20090605, end: 20100702
  9. RINDERON [Concomitant]
     Indication: RENAL CELL CARCINOMA
     Dosage: 3 MG
     Route: 048
     Dates: start: 20100423, end: 20100702
  10. DUROTEP [Concomitant]
     Indication: RENAL CELL CARCINOMA
     Dosage: 16.8 MG, TID
     Dates: start: 20100416, end: 20100704

REACTIONS (6)
  - Malaise [Fatal]
  - C-reactive protein increased [Unknown]
  - Blood alkaline phosphatase increased [Unknown]
  - Blood lactate dehydrogenase increased [Unknown]
  - Renal cell carcinoma [Unknown]
  - Malignant neoplasm progression [Unknown]
